FAERS Safety Report 11635364 (Version 1)
Quarter: 2015Q4

REPORT INFORMATION
  Report Type: Spontaneous
  Country: GB (occurrence: GB)
  Receive Date: 20151016
  Receipt Date: 20151016
  Transmission Date: 20160304
  Serious: No
  Sender: FDA-Public Use
  Company Number: GB-GLENMARK PHARMACEUTICALS INC, USA.-2015GMK014998

PATIENT
  Age: 43 Year
  Sex: Female

DRUGS (2)
  1. GABAPENTIN. [Suspect]
     Active Substance: GABAPENTIN
     Indication: PAIN
  2. GABAPENTIN. [Suspect]
     Active Substance: GABAPENTIN
     Indication: HYPNOPOMPIC HALLUCINATION
     Dosage: UNK

REACTIONS (3)
  - Drug intolerance [Unknown]
  - Weight increased [Unknown]
  - Drug ineffective for unapproved indication [Unknown]
